FAERS Safety Report 13655269 (Version 1)
Quarter: 2017Q2

REPORT INFORMATION
  Report Type: Spontaneous
  Country: US (occurrence: US)
  Receive Date: 20170614
  Receipt Date: 20170614
  Transmission Date: 20170830
  Serious: No
  Sender: FDA-Public Use
  Company Number: None

PATIENT
  Sex: Female

DRUGS (1)
  1. IBRANCE [Suspect]
     Active Substance: PALBOCICLIB
     Indication: BREAST CANCER FEMALE
     Dosage: 1 CAP DAILY FOR 21 DAYS ON THEN 7 DAYS OFF PO
     Route: 048
     Dates: start: 20170328, end: 20170614

REACTIONS (3)
  - Arthralgia [None]
  - Headache [None]
  - Musculoskeletal stiffness [None]
